FAERS Safety Report 7917270-5 (Version None)
Quarter: 2011Q4

REPORT INFORMATION
  Report Type: 
  Country: None (occurrence: None)
  Receive Date: 20111116
  Receipt Date: 20111102
  Transmission Date: 20120403
  Serious: Yes (Hospitalization, Other)
  Sender: FDA-Public Use
  Company Number: PHHY2011DE96859

PATIENT
  Sex: Male

DRUGS (5)
  1. EXFORGE HCT [Suspect]
     Indication: HYPERTENSION
     Dosage: UNK UKN, UNK
  2. DIURETICS [Concomitant]
     Dosage: UNK UKN, UNK
  3. EXFORGE [Suspect]
     Indication: HYPERTENSION
     Dosage: 160 MG VALS AND 5 MG AMLO,1 DF, QD
  4. BETA BLOCKING AGENTS [Concomitant]
     Dosage: UNK UKN, UNK
  5. ASPIRIN [Concomitant]
     Indication: ANTICOAGULANT THERAPY
     Dosage: 100 MG, UNK

REACTIONS (5)
  - UPPER LIMB FRACTURE [None]
  - PARAESTHESIA [None]
  - HYPOAESTHESIA [None]
  - BLOOD PRESSURE SYSTOLIC INCREASED [None]
  - PERIPHERAL COLDNESS [None]
